FAERS Safety Report 13175421 (Version 1)
Quarter: 2017Q1

REPORT INFORMATION
  Report Type: Spontaneous
  Country: US (occurrence: US)
  Receive Date: 20170201
  Receipt Date: 20170201
  Transmission Date: 20170428
  Serious: No
  Sender: FDA-Public Use
  Company Number: US-PFIZER INC-2017041416

PATIENT
  Age: 56 Year
  Sex: Female

DRUGS (3)
  1. BIAXIN [Suspect]
     Active Substance: CLARITHROMYCIN
  2. DILANTIN [Suspect]
     Active Substance: PHENYTOIN
  3. IODINE. [Suspect]
     Active Substance: IODINE

REACTIONS (1)
  - Drug hypersensitivity [Unknown]
